FAERS Safety Report 12167934 (Version 6)
Quarter: 2016Q2

REPORT INFORMATION
  Report Type: Spontaneous
  Country: JP (occurrence: JP)
  Receive Date: 20160310
  Receipt Date: 20160401
  Transmission Date: 20160815
  Serious: Yes (Life-Threatening, Hospitalization, Other)
  Sender: FDA-Public Use
  Company Number: JP-PFIZER INC-2016081675

PATIENT
  Age: 94 Year
  Sex: Female
  Weight: 41 kg

DRUGS (15)
  1. ENALART [Concomitant]
     Active Substance: ENALAPRIL MALEATE
     Indication: HYPERTENSION
  2. DIART [Concomitant]
     Active Substance: AZOSEMIDE
     Indication: CARDIAC FAILURE
     Dosage: 30 MG, ALTERNATE DAY
     Route: 048
     Dates: start: 20140521, end: 20160204
  3. FRANDOL [Suspect]
     Active Substance: ISOSORBIDE DINITRATE
     Indication: ANGINA PECTORIS
     Dosage: 40 MG, DAILY
     Route: 062
     Dates: start: 20160201, end: 20160204
  4. FRANDOL [Suspect]
     Active Substance: ISOSORBIDE DINITRATE
     Indication: CARDIAC FAILURE
  5. SELARA [Concomitant]
     Active Substance: EPLERENONE
     Indication: HYPERTENSION
  6. ARTIST [Concomitant]
     Active Substance: CARVEDILOL
     Indication: ATRIAL FIBRILLATION
     Dosage: 2.5 MG, 2X/DAY
     Route: 048
     Dates: start: 20100616
  7. DIART [Concomitant]
     Active Substance: AZOSEMIDE
     Indication: HYPERTENSION
  8. ALDACTONE A [Suspect]
     Active Substance: SPIRONOLACTONE
     Indication: CARDIAC FAILURE
     Dosage: 25 MG, 1X/DAY
     Route: 048
     Dates: start: 20160201
  9. ARTIST [Concomitant]
     Active Substance: CARVEDILOL
     Indication: CARDIAC FAILURE
  10. ENALART [Concomitant]
     Active Substance: ENALAPRIL MALEATE
     Indication: CARDIAC FAILURE
     Dosage: 5 MG, 1X/DAY
     Route: 048
     Dates: start: 20140317
  11. SELARA [Concomitant]
     Active Substance: EPLERENONE
     Indication: CARDIAC FAILURE
     Dosage: 50 MG, 1X/DAY
     Route: 048
     Dates: start: 20151207, end: 20160204
  12. ELIQUIS [Suspect]
     Active Substance: APIXABAN
     Indication: CEREBRAL HAEMORRHAGE
     Dosage: 5 MG, 1X/DAY
     Route: 048
     Dates: start: 20140317, end: 20160204
  13. ELIQUIS [Suspect]
     Active Substance: APIXABAN
     Indication: CEREBROVASCULAR ACCIDENT PROPHYLAXIS
  14. ALDACTONE A [Suspect]
     Active Substance: SPIRONOLACTONE
     Indication: HYPERTENSION
  15. ARTIST [Concomitant]
     Active Substance: CARVEDILOL
     Indication: HYPERTENSION

REACTIONS (3)
  - Cardiac failure chronic [Recovered/Resolved]
  - Condition aggravated [Recovered/Resolved]
  - Cerebral haemorrhage [Recovered/Resolved with Sequelae]

NARRATIVE: CASE EVENT DATE: 20160201
